FAERS Safety Report 23303703 (Version 1)
Quarter: 2023Q4

REPORT INFORMATION
  Report Type: Report from Study
  Country: MY (occurrence: MY)
  Receive Date: 20231215
  Receipt Date: 20231215
  Transmission Date: 20240109
  Serious: Yes (Hospitalization)
  Sender: FDA-Public Use
  Company Number: MY-002147023-NVSC2023MY261485

PATIENT

DRUGS (1)
  1. RUXOLITINIB [Suspect]
     Active Substance: RUXOLITINIB
     Indication: Myelofibrosis
     Dosage: 25 MG, BID
     Route: 048
     Dates: start: 20230222

REACTIONS (1)
  - Abscess bacterial [Unknown]

NARRATIVE: CASE EVENT DATE: 20231128
